FAERS Safety Report 7417073-4 (Version None)
Quarter: 2011Q2

REPORT INFORMATION
  Report Type: 
  Country: None (occurrence: None)
  Receive Date: 20110415
  Receipt Date: 20110401
  Transmission Date: 20111010
  Serious: Yes (Death, Hospitalization)
  Sender: FDA-Public Use
  Company Number: DE-JNJFOC-20110107387

PATIENT
  Sex: Male
  Weight: 64 kg

DRUGS (5)
  1. PALEXIA RETARD [Suspect]
     Indication: PAIN
     Dosage: DOSE: 50MG, 2 IN 1 DAY.
     Route: 065
     Dates: start: 20101022, end: 20101123
  2. RAMIPRIL [Concomitant]
  3. MARCUMAR [Concomitant]
  4. AGGRENOX [Concomitant]
  5. PREGABALIN [Concomitant]
     Indication: PRODUCT USED FOR UNKNOWN INDICATION
     Route: 065

REACTIONS (4)
  - CEREBRAL INFARCTION [None]
  - FALL [None]
  - HYPOAESTHESIA [None]
  - ASTHENIA [None]
